FAERS Safety Report 5192380-7 (Version None)
Quarter: 2006Q4

REPORT INFORMATION
  Report Type: 
  Country: None (occurrence: None)
  Receive Date: 20061227
  Receipt Date: 20061218
  Transmission Date: 20070319
  Serious: Yes (Hospitalization)
  Sender: FDA-Public Use
  Company Number: FR-PFIZER INC-2006154632

PATIENT
  Age: 58 Year
  Sex: Female

DRUGS (2)
  1. ZOLOFT [Suspect]
     Dosage: TEXT:UNKNOWN
     Route: 048
     Dates: start: 20060215, end: 20061011
  2. STRESAM [Suspect]
     Dosage: TEXT:UNKNOWN
     Route: 048
     Dates: start: 20060215, end: 20061011

REACTIONS (2)
  - COLITIS [None]
  - DIARRHOEA [None]
